FAERS Safety Report 6231847-7 (Version None)
Quarter: 2009Q2

REPORT INFORMATION
  Report Type: 
  Country: None (occurrence: None)
  Receive Date: 20090612
  Receipt Date: 20090612
  Transmission Date: 20091009
  Serious: Yes (Life-Threatening, Hospitalization)
  Sender: FDA-Public Use
  Company Number: None

PATIENT
  Age: 81 Year
  Sex: Female
  Weight: 73 kg

DRUGS (1)
  1. FELBAMATE [Suspect]
     Dosage: 600MG BID PO
     Route: 048

REACTIONS (2)
  - AGRANULOCYTOSIS [None]
  - APLASTIC ANAEMIA [None]
